FAERS Safety Report 6868760-8 (Version None)
Quarter: 2010Q3

REPORT INFORMATION
  Report Type: 
  Country: None (occurrence: None)
  Receive Date: 20100721
  Receipt Date: 20100721
  Transmission Date: 20110219
  Serious: Yes (Hospitalization)
  Sender: FDA-Public Use
  Company Number: None

PATIENT
  Age: 75 Year
  Sex: Male

DRUGS (13)
  1. REVLIMID [Suspect]
     Indication: MULTIPLE MYELOMA
     Dosage: 5MG TID PO
     Route: 048
  2. PLAVIX [Concomitant]
  3. NITRO-DUR [Concomitant]
  4. COREG [Concomitant]
  5. LASIX NEPHROCAP [Concomitant]
  6. NTG SL [Concomitant]
  7. NORVASC [Concomitant]
  8. PEPCID [Concomitant]
  9. LOVAZA [Concomitant]
  10. OXYCONTIN [Concomitant]
  11. ASPIRIN [Concomitant]
  12. DILAUDID [Concomitant]
  13. MEGACE ES [Concomitant]

REACTIONS (1)
  - DEEP VEIN THROMBOSIS [None]
